FAERS Safety Report 9236414 (Version 1)
Quarter: 2013Q2

REPORT INFORMATION
  Report Type: Spontaneous
  Country: FR (occurrence: None)
  Receive Date: 20130415
  Receipt Date: 20130415
  Transmission Date: 20140414
  Serious: Yes (Other)
  Sender: FDA-Public Use
  Company Number: SYM-2013-02502

PATIENT
  Age: 86 Year
  Sex: Female

DRUGS (4)
  1. FLUOROURACIL (FLUOROURACIL) (FLUOROURACIL) [Suspect]
     Indication: ADENOCARCINOMA OF COLON
  2. OXALIPLATIN [Suspect]
     Indication: ADENOCARCINOMA OF COLON
  3. FOLINIC ACID [Suspect]
     Indication: ADENOCARCINOMA OF COLON
  4. BEVACIZUMAB [Suspect]
     Indication: ADENOCARCINOMA OF COLON

REACTIONS (5)
  - Diarrhoea [None]
  - Neck pain [None]
  - Odynophagia [None]
  - Device dislocation [None]
  - Extravasation [None]
